FAERS Safety Report 10567691 (Version 1)
Quarter: 2014Q4

REPORT INFORMATION
  Report Type: Spontaneous
  Country: FR (occurrence: None)
  Receive Date: 20141031
  Receipt Date: 20141031
  Transmission Date: 20150529
  Serious: Yes (Other)
  Sender: FDA-Public Use
  Company Number: GAM-358-14-FR

PATIENT
  Age: 78 Year
  Sex: Male

DRUGS (1)
  1. OCTAGAM IMMUNE GLOBULIN (HUMAN) [Suspect]
     Active Substance: HUMAN IMMUNOGLOBULIN G
     Indication: DEMYELINATING POLYNEUROPATHY
     Dosage: 2000 MG/KG (1X 6/WEEKS)?(NOT OTHERWISE SPECIFIED)
     Route: 042
     Dates: start: 200901, end: 200910

REACTIONS (1)
  - Pancytopenia [None]

NARRATIVE: CASE EVENT DATE: 200910
